FAERS Safety Report 5903434-9 (Version None)
Quarter: 2008Q3

REPORT INFORMATION
  Report Type: 
  Country: None (occurrence: None)
  Receive Date: 20080926
  Receipt Date: 20080916
  Transmission Date: 20090109
  Serious: Yes (Other)
  Sender: FDA-Public Use
  Company Number: CHPA2008US15512

PATIENT
  Age: 35 Year
  Sex: Female

DRUGS (1)
  1. COMTREX COLD+COUGH DAY (NCH) (PARACETAMOL, DEXTROMETHORPHAN, PHENYLEPH [Suspect]
     Dosage: 2 DF, BID, ORAL
     Route: 048
     Dates: start: 20080915, end: 20080915

REACTIONS (1)
  - CONVULSION [None]
